FAERS Safety Report 9170795 (Version 1)
Quarter: 2013Q1

REPORT INFORMATION
  Report Type: Spontaneous
  Country: GB (occurrence: None)
  Receive Date: 20130311
  Receipt Date: 20130311
  Transmission Date: 20140127
  Serious: Yes (Other)
  Sender: FDA-Public Use
  Company Number: GER/UKI/13/0028371

PATIENT
  Age: 51 Year
  Sex: Male
  Weight: 105 kg

DRUGS (6)
  1. OMEPRAZOLE (OMEPRAZOLE) [Suspect]
     Indication: PRODUCT USED FOR UNKNOWN INDICATION
     Dates: start: 20130118
  2. AMIAS (CANDESARTAN CILEXETIL) [Concomitant]
  3. AMOXICILLIN (AMOXICILLIN) [Concomitant]
  4. ASPIRIN (ACETYLSALICYLIC ACID) [Concomitant]
  5. CANDESARTAN (CANDESARTAN) [Concomitant]
  6. FELODIPINE (FELODIPINE) [Concomitant]

REACTIONS (1)
  - Gastrointestinal disorder [None]
